FAERS Safety Report 9830804 (Version 2)
Quarter: 2014Q1

REPORT INFORMATION
  Report Type: Spontaneous
  Country: JP (occurrence: JP)
  Receive Date: 20140120
  Receipt Date: 20140127
  Transmission Date: 20141002
  Serious: Yes (Other)
  Sender: FDA-Public Use
  Company Number: JP-ABBVIE-14P-087-1192448-00

PATIENT
  Age: 65 Year
  Sex: Female

DRUGS (5)
  1. HUMIRA [Suspect]
     Indication: RHEUMATOID ARTHRITIS
  2. METHOTREXATE [Suspect]
     Indication: RHEUMATOID ARTHRITIS
  3. TOCILIZUMAB [Suspect]
     Indication: RHEUMATOID ARTHRITIS
  4. ETANERCEPT [Suspect]
     Indication: RHEUMATOID ARTHRITIS
  5. ABATACEPT [Suspect]
     Indication: RHEUMATOID ARTHRITIS

REACTIONS (5)
  - Overlap syndrome [Unknown]
  - Polymyositis [Unknown]
  - Systemic lupus erythematosus [Unknown]
  - Hypersensitivity [Unknown]
  - Drug ineffective [Unknown]
